FAERS Safety Report 23610532 (Version 1)
Quarter: 2024Q1

REPORT INFORMATION
  Report Type: Spontaneous
  Country: US (occurrence: US)
  Receive Date: 20240308
  Receipt Date: 20240308
  Transmission Date: 20240409
  Serious: No
  Sender: FDA-Public Use
  Company Number: US-SA-SAC20240305000138

PATIENT
  Age: 2 Year
  Sex: Male

DRUGS (1)
  1. DUPIXENT [Suspect]
     Active Substance: DUPILUMAB
     Indication: Dermatitis atopic
     Dosage: 200MG Q4W
     Route: 058
     Dates: start: 202311

REACTIONS (4)
  - Cheilitis [Unknown]
  - Lip pruritus [Unknown]
  - Eyelids pruritus [Unknown]
  - Blepharitis [Unknown]
